FAERS Safety Report 10120096 (Version 1)
Quarter: 2014Q2

REPORT INFORMATION
  Report Type: Spontaneous
  Country: US (occurrence: US)
  Receive Date: 20140425
  Receipt Date: 20140425
  Transmission Date: 20141212
  Serious: Yes (Other)
  Sender: FDA-Public Use
  Company Number: US-PFIZER INC-2014114290

PATIENT
  Age: 47 Year
  Sex: Female
  Weight: 81.63 kg

DRUGS (4)
  1. EFFEXOR XR [Suspect]
     Indication: DEPRESSION
     Dosage: 75 MG, DAILY
     Dates: start: 201402, end: 20140404
  2. EFFEXOR XR [Suspect]
     Indication: ANXIETY
     Dosage: 150 MG, DAILY
     Dates: start: 20140405, end: 20140417
  3. EFFEXOR XR [Suspect]
     Dosage: 75 MG, DAILY
     Dates: start: 20140418
  4. CLONAZEPAM [Concomitant]
     Indication: SLEEP DISORDER
     Dosage: 0.5 MG, UNK

REACTIONS (13)
  - Hallucination [Unknown]
  - Nervousness [Unknown]
  - Insomnia [Unknown]
  - Tremor [Unknown]
  - Tendonitis [Unknown]
  - Tinnitus [Unknown]
  - Hyperacusis [Unknown]
  - Drug withdrawal syndrome [Unknown]
  - Nightmare [Unknown]
  - Parosmia [Unknown]
  - Dysgeusia [Unknown]
  - Vertigo [Unknown]
  - Pruritus [Unknown]
